FAERS Safety Report 16184767 (Version 1)
Quarter: 2019Q2

REPORT INFORMATION
  Report Type: Spontaneous
  Country: SE (occurrence: SE)
  Receive Date: 20190411
  Receipt Date: 20190411
  Transmission Date: 20190711
  Serious: Yes (Hospitalization)
  Sender: FDA-Public Use
  Company Number: SE-TEVA-2019-SE-1036305

PATIENT
  Age: 89 Year
  Sex: Male

DRUGS (9)
  1. MOVICOL  PULVER TILL ORAL L?SNING I DOSP?SE [Concomitant]
     Indication: CONSTIPATION
     Dosage: 1 DOSAGE FORMS DAILY; POWDER FOR ORAL SOLUTION IN SACHET
     Route: 048
     Dates: start: 20180822
  2. MEMANTINE. [Suspect]
     Active Substance: MEMANTINE
     Indication: DEMENTIA
     Dates: start: 20180822, end: 20181212
  3. CASODEX 150 MG FILMDRAGERAD TABLETT [Concomitant]
     Dosage: 150 MILLIGRAM DAILY;
     Route: 048
     Dates: start: 20170325
  4. TROMBYL 75 MG TABLETT [Concomitant]
     Active Substance: ASPIRIN
     Dosage: 75 MILLIGRAM DAILY;
     Route: 048
     Dates: start: 20170325
  5. HEMINEVRIN 300 MG KAPSEL, MJUK [Concomitant]
     Route: 048
     Dates: start: 20181201
  6. FURIX 40 MG TABLETT [Concomitant]
     Dosage: 1 TABLET IF NECESSARY, NO MORE THAN 2 TABLETS PER DAY
     Route: 048
     Dates: start: 20170324
  7. METOPROLOL. [Concomitant]
     Active Substance: METOPROLOL
  8. ALVEDON 500 MG FILMDRAGERAD TABLETT [Concomitant]
     Indication: PAIN
     Dosage: 1000 MILLIGRAM
     Route: 048
     Dates: start: 20180730
  9. RISPERDAL 0,5 MG FILMDRAGERAD TABLETT [Concomitant]
     Route: 048
     Dates: start: 20181127

REACTIONS (1)
  - Syncope [Recovered/Resolved]

NARRATIVE: CASE EVENT DATE: 20181211
